FAERS Safety Report 13055699 (Version 1)
Quarter: 2016Q4

REPORT INFORMATION
  Report Type: Spontaneous
  Country: US (occurrence: US)
  Receive Date: 20161222
  Receipt Date: 20161222
  Transmission Date: 20170207
  Serious: No
  Sender: FDA-Public Use
  Company Number: US-BAYER-2016-242941

PATIENT
  Age: 38 Year
  Sex: Female

DRUGS (3)
  1. METHYLDOPA. [Concomitant]
     Active Substance: METHYLDOPA
     Indication: ABNORMAL PRODUCT OF CONCEPTION
     Route: 061
  2. CIPROFLOXACIN. [Suspect]
     Active Substance: CIPROFLOXACIN
  3. HYDROCORTISONE. [Concomitant]
     Active Substance: HYDROCORTISONE

REACTIONS (2)
  - Drug ineffective [None]
  - Exposure during pregnancy [None]
